FAERS Safety Report 5250479-0 (Version None)
Quarter: 2007Q1

REPORT INFORMATION
  Report Type: 
  Country: None (occurrence: None)
  Receive Date: 20070228
  Receipt Date: 20060503
  Transmission Date: 20070707
  Serious: No
  Sender: FDA-Public Use
  Company Number: US-GLAXOSMITHKLINE-A0602831A

PATIENT
  Age: 32 Year
  Sex: Female

DRUGS (3)
  1. LAMICTAL [Suspect]
     Dosage: 25MG TWICE PER DAY
     Route: 048
     Dates: start: 20060324
  2. DILANTIN [Concomitant]
  3. TOPROL-XL [Concomitant]

REACTIONS (1)
  - MENSTRUAL DISORDER [None]
